FAERS Safety Report 8004630-X (Version None)
Quarter: 2011Q4

REPORT INFORMATION
  Report Type: 
  Country: None (occurrence: None)
  Receive Date: 20111223
  Receipt Date: 20111214
  Transmission Date: 20120403
  Serious: Yes (Other)
  Sender: FDA-Public Use
  Company Number: US-JNJFOC-20111206586

PATIENT
  Sex: Female
  Weight: 32.66 kg

DRUGS (4)
  1. REMICADE [Suspect]
     Indication: RHEUMATOID ARTHRITIS
     Route: 042
     Dates: start: 20110924, end: 20110924
  2. FOLIC ACID [Concomitant]
     Indication: RHEUMATOID ARTHRITIS
     Route: 048
  3. PREDNISONE TAB [Concomitant]
     Indication: RHEUMATOID ARTHRITIS
     Route: 048
  4. METHOTREXATE [Concomitant]
     Indication: RHEUMATOID ARTHRITIS
     Route: 048

REACTIONS (12)
  - CHILLS [None]
  - FEAR OF NEEDLES [None]
  - SENSATION OF FOREIGN BODY [None]
  - DYSPNOEA [None]
  - ANAEMIA [None]
  - OROPHARYNGEAL PAIN [None]
  - LOWER EXTREMITY MASS [None]
  - SINUSITIS [None]
  - PYREXIA [None]
  - NEOPLASM SKIN [None]
  - FATIGUE [None]
  - FEAR [None]
